FAERS Safety Report 6118614-X (Version None)
Quarter: 2009Q1

REPORT INFORMATION
  Report Type: 
  Country: None (occurrence: None)
  Receive Date: 20090314
  Receipt Date: 20090220
  Transmission Date: 20090719
  Serious: No
  Sender: FDA-Public Use
  Company Number: US-ABBOTT-09P-163-0558904-00

PATIENT
  Sex: Female
  Weight: 48.578 kg

DRUGS (1)
  1. HUMIRA [Suspect]
     Indication: CROHN'S DISEASE
     Route: 058
     Dates: start: 20090123

REACTIONS (2)
  - MELANOCYTIC NAEVUS [None]
  - OLIGOMENORRHOEA [None]
